FAERS Safety Report 5119871-9 (Version None)
Quarter: 2006Q4

REPORT INFORMATION
  Report Type: 
  Country: None (occurrence: None)
  Receive Date: 20061003
  Receipt Date: 20060922
  Transmission Date: 20070319
  Serious: Yes (Hospitalization)
  Sender: FDA-Public Use
  Company Number: BR-BOEHRINGER INGELHEIM PHARMACEUTICALS, INC.-2006-BP-11130BR

PATIENT
  Age: 56 Year
  Sex: Female

DRUGS (10)
  1. SPIRIVA [Suspect]
     Indication: CHRONIC OBSTRUCTIVE PULMONARY DISEASE
     Route: 055
     Dates: start: 20050101
  2. SERETIDE [Concomitant]
     Indication: CHRONIC OBSTRUCTIVE PULMONARY DISEASE
  3. TEOLONG [Concomitant]
     Indication: CHRONIC OBSTRUCTIVE PULMONARY DISEASE
  4. METICORTEN [Concomitant]
  5. RIVOTRIL [Concomitant]
     Indication: DEPRESSION
  6. TALOFILINA [Concomitant]
     Indication: CHRONIC OBSTRUCTIVE PULMONARY DISEASE
  7. CLORIDRATO DE RANITIDINA [Concomitant]
  8. GARDENAL [Concomitant]
     Indication: EPILEPSY
  9. NOVALGINA [Concomitant]
     Indication: HEADACHE
  10. DIPIRONA [Concomitant]
     Indication: HEADACHE

REACTIONS (2)
  - ARRHYTHMIA [None]
  - PALPITATIONS [None]
